APPROVED DRUG PRODUCT: ATACAND HCT
Active Ingredient: CANDESARTAN CILEXETIL; HYDROCHLOROTHIAZIDE
Strength: 16MG;12.5MG
Dosage Form/Route: TABLET;ORAL
Application: N021093 | Product #001 | TE Code: AB
Applicant: ANI PHARMACEUTICALS INC
Approved: Sep 5, 2000 | RLD: Yes | RS: No | Type: RX